FAERS Safety Report 8397687-8 (Version None)
Quarter: 2012Q2

REPORT INFORMATION
  Report Type: 
  Country: None (occurrence: None)
  Receive Date: 20120531
  Receipt Date: 20120524
  Transmission Date: 20120825
  Serious: Yes (Other)
  Sender: FDA-Public Use
  Company Number: US-PFIZER INC-2012126857

PATIENT
  Sex: Female
  Weight: 65.76 kg

DRUGS (1)
  1. IBUPROFEN (ADVIL) [Suspect]
     Indication: HEADACHE
     Dosage: UNK, AS NEEDED
     Route: 048

REACTIONS (1)
  - HYPERTENSION [None]
